FAERS Safety Report 14325262 (Version 1)
Quarter: 2017Q4

REPORT INFORMATION
  Report Type: Spontaneous
  Country: GB (occurrence: GB)
  Receive Date: 20171224
  Receipt Date: 20171224
  Transmission Date: 20180321
  Serious: Yes (Other)
  Sender: FDA-Public Use
  Company Number: None

PATIENT
  Age: 34 Year
  Sex: Female

DRUGS (1)
  1. MIRVASO [Suspect]
     Active Substance: BRIMONIDINE TARTRATE
     Indication: FLUSHING
     Route: 061
     Dates: start: 20170105, end: 20170105

REACTIONS (6)
  - Skin discolouration [None]
  - Erythema [None]
  - Rosacea [None]
  - Flushing [None]
  - Suicidal ideation [None]
  - Quality of life decreased [None]

NARRATIVE: CASE EVENT DATE: 20170105
